FAERS Safety Report 4658128-7 (Version None)
Quarter: 2005Q2

REPORT INFORMATION
  Report Type: 
  Country: None (occurrence: None)
  Receive Date: 20050509
  Receipt Date: 20050420
  Transmission Date: 20051028
  Serious: Yes (Other)
  Sender: FDA-Public Use
  Company Number: 2005USFACT00513

PATIENT
  Age: 54 Year

DRUGS (1)
  1. FACTIVE [Suspect]
     Indication: RESPIRATORY TRACT INFECTION
     Dates: start: 20050101, end: 20050101

REACTIONS (2)
  - RASH [None]
  - RETINAL HAEMORRHAGE [None]
